FAERS Safety Report 18362250 (Version 1)
Quarter: 2020Q4

REPORT INFORMATION
  Report Type: Spontaneous
  Country: US (occurrence: US)
  Receive Date: 20201008
  Receipt Date: 20201008
  Transmission Date: 20210114
  Serious: Yes (Hospitalization)
  Sender: FDA-Public Use
  Company Number: None

PATIENT
  Age: 63 Year
  Sex: Male

DRUGS (17)
  1. NOVOLOG [Concomitant]
     Active Substance: INSULIN ASPART
  2. EZETIMBE [Concomitant]
     Active Substance: EZETIMIBE
  3. METOPROL TAR [Concomitant]
  4. REPATHA [Suspect]
     Active Substance: EVOLOCUMAB
     Indication: TYPE V HYPERLIPIDAEMIA
     Dosage: FREQUENCY: Q2WK
     Route: 058
     Dates: start: 20190711
  5. VASCEPA [Concomitant]
     Active Substance: ICOSAPENT ETHYL
  6. LISINOPRIL. [Concomitant]
     Active Substance: LISINOPRIL
  7. L-METHYL B6-B12 [Concomitant]
  8. CLOPIDOGREL [Concomitant]
     Active Substance: CLOPIDOGREL BISULFATE
  9. HYDROCO/APAP [Concomitant]
     Active Substance: ACETAMINOPHEN\HYDROCODONE
  10. ISOSORB MONO [Concomitant]
     Active Substance: ISOSORBIDE MONONITRATE
  11. MONTELUKAST [Concomitant]
     Active Substance: MONTELUKAST SODIUM
  12. SIMVASTATIN. [Concomitant]
     Active Substance: SIMVASTATIN
  13. LANTUS SOLOS [Concomitant]
  14. RANOLAZINE. [Concomitant]
     Active Substance: RANOLAZINE
  15. SYNTHROID [Concomitant]
     Active Substance: LEVOTHYROXINE SODIUM
  16. JARDIANCE [Concomitant]
     Active Substance: EMPAGLIFLOZIN
  17. METOCLOPRAM [Concomitant]
     Active Substance: METOCLOPRAMIDE

REACTIONS (1)
  - Oesophageal operation [None]

NARRATIVE: CASE EVENT DATE: 20201007
